FAERS Safety Report 4577922-4 (Version None)
Quarter: 2005Q1

REPORT INFORMATION
  Report Type: 
  Country: None (occurrence: None)
  Receive Date: 20050209
  Receipt Date: 20050118
  Transmission Date: 20050727
  Serious: Yes (Other)
  Sender: FDA-Public Use
  Company Number: GBS050116426

PATIENT
  Age: 68 Year
  Sex: Female
  Weight: 72 kg

DRUGS (4)
  1. YENTREVE (DULOXETINE HYDROCHLORIDE) [Suspect]
     Indication: STRESS INCONTINENCE
     Dosage: 40 MG/2 DAY
     Dates: start: 20041025
  2. OLMESARTAN MEDOXOMIL [Concomitant]
  3. INDAPAMIDE [Concomitant]
  4. PROPIVERINE [Concomitant]

REACTIONS (2)
  - CONFUSIONAL STATE [None]
  - URINARY TRACT INFECTION [None]
